FAERS Safety Report 10086001 (Version 1)
Quarter: 2014Q2

REPORT INFORMATION
  Report Type: Report from Study
  Country: BR (occurrence: BR)
  Receive Date: 20140418
  Receipt Date: 20140418
  Transmission Date: 20141212
  Serious: Yes (Other)
  Sender: FDA-Public Use
  Company Number: PHHY2014BR046330

PATIENT
  Sex: Male
  Weight: 70 kg

DRUGS (6)
  1. FORASEQ [Suspect]
     Indication: LUNG DISORDER
     Dosage: 1 DF (12 UG FORM/ 400 UG BUDE), DAILY
  2. ANCORON [Suspect]
     Indication: ARRHYTHMIA
     Dosage: 200 MG, DAILY
  3. ASPIRIN PREVENT [Concomitant]
     Indication: THROMBOSIS PROPHYLAXIS
     Dosage: 100 MG, DAILY
  4. PANTOPRAZOLE [Concomitant]
     Indication: ABDOMINAL DISCOMFORT
     Dosage: 40 MG, DAILY
  5. COVERSYL PLUS [Concomitant]
     Dosage: 1 DF, DAILY
  6. LABIRIN [Concomitant]
     Indication: LABYRINTHITIS
     Dosage: 48 MG, (24 MG, 2 TABLETS, DAILY)

REACTIONS (1)
  - Diabetes mellitus [Unknown]
